FAERS Safety Report 13659764 (Version 2)
Quarter: 2017Q3

REPORT INFORMATION
  Report Type: Spontaneous
  Country: US (occurrence: US)
  Receive Date: 20170616
  Receipt Date: 20170726
  Transmission Date: 20171127
  Serious: No
  Sender: FDA-Public Use
  Company Number: US-009507513-1706USA007326

PATIENT
  Age: 17 Year
  Sex: Female

DRUGS (3)
  1. AMPHOTERICIN B. [Interacting]
     Active Substance: AMPHOTERICIN B
     Dosage: UNK
     Route: 037
  2. AMPHOTERICIN B. [Interacting]
     Active Substance: AMPHOTERICIN B
     Indication: MUCORMYCOSIS
     Dosage: UNK
     Route: 042
  3. NOXAFIL [Suspect]
     Active Substance: POSACONAZOLE
     Indication: MUCORMYCOSIS
     Dosage: UNK
     Route: 048

REACTIONS (1)
  - Drug interaction [Unknown]
